FAERS Safety Report 8911015 (Version 1)
Quarter: 2012Q4

REPORT INFORMATION
  Report Type: 
  Country: AT (occurrence: AT)
  Receive Date: 20121116
  Receipt Date: 20121116
  Transmission Date: 20130627
  Serious: Yes (Life-Threatening, Hospitalization)
  Sender: FDA-Public Use
  Company Number: AT-SANOFI-AVENTIS-2012SA082739

PATIENT
  Age: 65 Year
  Sex: Male
  Weight: 64 kg

DRUGS (6)
  1. ELOXATIN [Suspect]
     Indication: PALLIATIVE CARE
     Route: 042
     Dates: start: 20120928, end: 20120928
  2. ELOXATIN [Suspect]
     Indication: RECTAL CANCER METASTATIC
     Route: 042
     Dates: start: 20120928, end: 20120928
  3. AVASTIN [Suspect]
     Indication: PALLIATIVE CARE
     Route: 042
     Dates: start: 20120928, end: 20120928
  4. AVASTIN [Suspect]
     Indication: RECTAL CANCER METASTATIC
     Route: 042
     Dates: start: 20120928, end: 20120928
  5. XELODA [Suspect]
     Indication: PALLIATIVE CARE
     Dosage: 500 mg/ 3-0-2
     Route: 065
     Dates: start: 20120928, end: 20121011
  6. XELODA [Suspect]
     Indication: RECTAL CANCER METASTATIC
     Dosage: 500 mg/ 3-0-2
     Route: 065
     Dates: start: 20120928, end: 20121011

REACTIONS (1)
  - Small intestinal perforation [Not Recovered/Not Resolved]
